FAERS Safety Report 5187826-4 (Version None)
Quarter: 2006Q4

REPORT INFORMATION
  Report Type: 
  Country: None (occurrence: None)
  Receive Date: 20061214
  Receipt Date: 20061205
  Transmission Date: 20070319
  Serious: Yes (Other)
  Sender: FDA-Public Use
  Company Number: 2006150641

PATIENT
  Age: 67 Year
  Sex: Female
  Weight: 65.7716 kg

DRUGS (8)
  1. LIPITOR [Suspect]
     Indication: BLOOD CHOLESTEROL INCREASED
     Dosage: (20 MG)
     Dates: start: 20010101
  2. ASPIRIN [Concomitant]
  3. PREMARIN [Concomitant]
  4. MEDROXYPROGESTERONE [Concomitant]
  5. VITAMIN C (VITAMIN C) [Concomitant]
  6. VITAMIN B (VITAMIN B) [Concomitant]
  7. NEXIUM [Concomitant]
  8. ALL OTHER THERAPEUTIC PRODUCTS (ALL OTHER THERAPEUTIC PRODUCTS) [Concomitant]

REACTIONS (2)
  - DEPRESSION [None]
  - HYPERTENSION [None]
